FAERS Safety Report 5182897-3 (Version None)
Quarter: 2006Q4

REPORT INFORMATION
  Report Type: 
  Country: None (occurrence: None)
  Receive Date: 20061220
  Receipt Date: 20051130
  Transmission Date: 20070319
  Serious: No
  Sender: FDA-Public Use
  Company Number: US-GLAXOSMITHKLINE-A0584023A

PATIENT
  Age: 33 Year
  Sex: Female

DRUGS (4)
  1. NICODERM CQ [Suspect]
     Dates: start: 20051129, end: 20051129
  2. DENTAL ANESTHETIC [Concomitant]
  3. AMOXICILLIN [Concomitant]
  4. LORCET-HD [Concomitant]

REACTIONS (1)
  - HEADACHE [None]
